FAERS Safety Report 7692425-6 (Version None)
Quarter: 2011Q3

REPORT INFORMATION
  Report Type: 
  Country: None (occurrence: None)
  Receive Date: 20110818
  Receipt Date: 20110811
  Transmission Date: 20111222
  Serious: Yes (Other)
  Sender: FDA-Public Use
  Company Number: US-US-EMD SERONO, INC.-7076517

PATIENT
  Sex: Female
  Weight: 81 kg

DRUGS (2)
  1. UNSPECIFIED PAIN MEDICATION [Concomitant]
     Indication: HEADACHE
     Dates: start: 19910101, end: 20030101
  2. REBIF [Suspect]
     Indication: MULTIPLE SCLEROSIS
     Route: 058
     Dates: start: 20031017

REACTIONS (5)
  - ANXIETY [None]
  - HEPATIC ENZYME INCREASED [None]
  - CARDIAC FAILURE CONGESTIVE [None]
  - WEIGHT INCREASED [None]
  - CORONARY ARTERY STENOSIS [None]
